FAERS Safety Report 8934931 (Version 1)
Quarter: 2012Q4

REPORT INFORMATION
  Report Type: Report from Study
  Country: JP (occurrence: JP)
  Receive Date: 20121129
  Receipt Date: 20121129
  Transmission Date: 20130627
  Serious: Yes (Other)
  Sender: FDA-Public Use
  Company Number: JP-US-EMD SERONO, INC.-7177092

PATIENT
  Sex: Female
  Weight: 66 kg

DRUGS (3)
  1. GONAL-F [Suspect]
     Indication: OVULATION INDUCTION
     Route: 058
     Dates: start: 20120710, end: 20120721
  2. GONAL-F [Suspect]
     Indication: POLYCYSTIC OVARIES
  3. SUPRECUR [Concomitant]
     Indication: OVULATION INDUCTION
     Route: 045
     Dates: start: 20110721, end: 20110721

REACTIONS (1)
  - Abortion spontaneous [Unknown]
